FAERS Safety Report 5637979-6 (Version None)
Quarter: 2008Q1

REPORT INFORMATION
  Report Type: 
  Country: None (occurrence: None)
  Receive Date: 20080226
  Receipt Date: 20080218
  Transmission Date: 20080703
  Serious: Yes (Other)
  Sender: FDA-Public Use
  Company Number: US-BAYER-US-2007-014091

PATIENT
  Age: 36 Year
  Sex: Female
  Weight: 57 kg

DRUGS (2)
  1. MIRENA [Suspect]
     Indication: CONTRACEPTION
     Route: 015
     Dates: start: 20060717, end: 20071018
  2. DOXYCYCLINE (NOS) [Concomitant]
     Indication: PROPHYLAXIS
     Route: 048
     Dates: start: 20060717

REACTIONS (18)
  - ABDOMINAL DISTENSION [None]
  - ABDOMINAL PAIN [None]
  - ANTEPARTUM HAEMORRHAGE [None]
  - APGAR SCORE NORMAL [None]
  - BACK PAIN [None]
  - BREAST TENDERNESS [None]
  - CARPAL TUNNEL SYNDROME [None]
  - COMPLICATION OF DEVICE INSERTION [None]
  - CYSTOSTOMY [None]
  - DEVICE BREAKAGE [None]
  - HYPERTENSION [None]
  - IUCD COMPLICATION [None]
  - IUD MIGRATION [None]
  - NAUSEA [None]
  - PRE-ECLAMPSIA [None]
  - PREGNANCY WITH CONTRACEPTIVE DEVICE [None]
  - PROTEIN URINE PRESENT [None]
  - UTERINE RUPTURE [None]
